FAERS Safety Report 10448366 (Version 2)
Quarter: 2014Q4

REPORT INFORMATION
  Report Type: Report from Study
  Country: DE (occurrence: DE)
  Receive Date: 20140911
  Receipt Date: 20141017
  Transmission Date: 20150528
  Serious: Yes (Death, Other)
  Sender: FDA-Public Use
  Company Number: DE-B.I. PHARMACEUTICALS,INC./RIDGEFIELD-2014-BI-42356DE

PATIENT
  Age: 76 Year
  Sex: Male
  Weight: 110 kg

DRUGS (3)
  1. CLEXANE [Concomitant]
     Active Substance: ENOXAPARIN SODIUM
     Indication: SURGERY
     Dosage: 1 ML
     Route: 058
     Dates: start: 20120607, end: 20120713
  2. PRADAXA [Suspect]
     Active Substance: DABIGATRAN ETEXILATE MESYLATE
     Indication: CEREBROVASCULAR ACCIDENT PROPHYLAXIS
     Dosage: 2 ANZ
     Route: 048
     Dates: start: 20111024, end: 20130101
  3. PRADAXA [Suspect]
     Active Substance: DABIGATRAN ETEXILATE MESYLATE
     Indication: ATRIAL FIBRILLATION

REACTIONS (5)
  - Acute coronary syndrome [Unknown]
  - Sepsis [Fatal]
  - Multi-organ failure [Fatal]
  - Intervertebral discitis [Fatal]
  - Hypoventilation [Fatal]

NARRATIVE: CASE EVENT DATE: 20120707
